FAERS Safety Report 6738382-8 (Version None)
Quarter: 2010Q2

REPORT INFORMATION
  Report Type: 
  Country: None (occurrence: None)
  Receive Date: 20100524
  Receipt Date: 20100514
  Transmission Date: 20101027
  Serious: Yes (Other)
  Sender: FDA-Public Use
  Company Number: TR-ELI_LILLY_AND_COMPANY-TR201005004772

PATIENT

DRUGS (4)
  1. HUMULIN 70/30 [Suspect]
     Indication: GESTATIONAL DIABETES
     Dosage: 6 IU, EACH MORNING
     Route: 064
     Dates: start: 20100314, end: 20100510
  2. HUMULIN 70/30 [Suspect]
     Dosage: 5 IU, EACH EVENING
     Route: 064
     Dates: start: 20100314, end: 20100510
  3. VITAMINS [Concomitant]
     Indication: VITAMIN SUPPLEMENTATION
     Dosage: UNK, DAILY (1/D)
     Route: 064
     Dates: start: 20091014
  4. IRON [Concomitant]
     Indication: MINERAL SUPPLEMENTATION
     Dosage: UNK, DAILY (1/D)
     Route: 064
     Dates: start: 20091014

REACTIONS (3)
  - DRUG EXPOSURE DURING PREGNANCY [None]
  - ERYTHROBLASTOSIS FOETALIS [None]
  - MACROSOMIA [None]
